FAERS Safety Report 7802904-6 (Version None)
Quarter: 2011Q4

REPORT INFORMATION
  Report Type: 
  Country: None (occurrence: None)
  Receive Date: 20111007
  Receipt Date: 20111004
  Transmission Date: 20120403
  Serious: No
  Sender: FDA-Public Use
  Company Number: US-PFIZER INC-2011198093

PATIENT
  Sex: Female
  Weight: 61.678 kg

DRUGS (4)
  1. IBUPROFEN (ADVIL) [Suspect]
     Indication: SHOULDER OPERATION
     Dosage: 200 MG, UNK
  2. MOTRIN [Suspect]
     Indication: HEADACHE
  3. MOTRIN [Suspect]
     Indication: MYALGIA
     Dosage: UNK
     Route: 048
  4. ZANTAC [Concomitant]
     Dosage: UNK

REACTIONS (4)
  - ABDOMINAL DISCOMFORT [None]
  - DRUG TOLERANCE [None]
  - GASTRIC DISORDER [None]
  - HYPERCHLORHYDRIA [None]
